FAERS Safety Report 8232460-2 (Version None)
Quarter: 2012Q1

REPORT INFORMATION
  Report Type: 
  Country: None (occurrence: None)
  Receive Date: 20120323
  Receipt Date: 20120320
  Transmission Date: 20120608
  Serious: No
  Sender: FDA-Public Use
  Company Number: US-PFIZER INC-K201100668

PATIENT
  Sex: Male

DRUGS (1)
  1. SILVADENE [Suspect]
     Indication: CELLULITIS
     Dosage: UNK
     Route: 061
     Dates: start: 20090101

REACTIONS (2)
  - SKIN DISORDER [None]
  - SKIN DISCOLOURATION [None]
